FAERS Safety Report 5386190-5 (Version None)
Quarter: 2007Q3

REPORT INFORMATION
  Report Type: 
  Country: None (occurrence: None)
  Receive Date: 20070710
  Receipt Date: 20070710
  Transmission Date: 20080115
  Serious: Yes (Other)
  Sender: FDA-Public Use
  Company Number: None

PATIENT
  Age: 51 Year
  Sex: Female
  Weight: 61.2356 kg

DRUGS (1)
  1. LEVAQUIN [Suspect]
     Indication: SINUSITIS
     Dates: start: 20060903, end: 20060905

REACTIONS (13)
  - ABASIA [None]
  - ANXIETY [None]
  - CHILLS [None]
  - DRUG TOXICITY [None]
  - FEELING ABNORMAL [None]
  - HYPERHIDROSIS [None]
  - IMPAIRED DRIVING ABILITY [None]
  - IMPAIRED WORK ABILITY [None]
  - INSOMNIA [None]
  - PALATAL OEDEMA [None]
  - PRURITUS [None]
  - SWOLLEN TONGUE [None]
  - TENDONITIS [None]
